FAERS Safety Report 8417472-8 (Version None)
Quarter: 2012Q2

REPORT INFORMATION
  Report Type: 
  Country: None (occurrence: None)
  Receive Date: 20120606
  Receipt Date: 20120530
  Transmission Date: 20120825
  Serious: Yes (Hospitalization)
  Sender: FDA-Public Use
  Company Number: US-TEVA-334613USA

PATIENT
  Sex: Female

DRUGS (7)
  1. CLONAZEPAM [Concomitant]
     Indication: SLEEP DISORDER
  2. HYDROCODONE BITARTRATE [Concomitant]
     Indication: PAIN
  3. ALPRAZOLAM [Concomitant]
     Indication: PANIC DISORDER
  4. PROAIR HFA [Suspect]
     Indication: CHRONIC OBSTRUCTIVE PULMONARY DISEASE
     Route: 055
     Dates: start: 20080101
  5. CITALOPRAM HYDROBROMIDE [Concomitant]
     Indication: DEPRESSION
  6. SERETIDE                           /01420901/ [Concomitant]
  7. VALPROATE SODIUM [Concomitant]
     Indication: DEPRESSION

REACTIONS (1)
  - PNEUMONIA [None]
